FAERS Safety Report 9444242 (Version 2)
Quarter: 2013Q3

REPORT INFORMATION
  Report Type: Spontaneous
  Country: AU (occurrence: AU)
  Receive Date: 20130807
  Receipt Date: 20130902
  Transmission Date: 20140515
  Serious: Yes (Other)
  Sender: FDA-Public Use
  Company Number: PHHY2013AU082812

PATIENT
  Age: 60 Year
  Sex: Male

DRUGS (2)
  1. GILENYA [Suspect]
     Indication: RELAPSING-REMITTING MULTIPLE SCLEROSIS
     Dosage: 0.5 MG, QD
     Route: 048
     Dates: start: 201111, end: 201307
  2. PERINDOPRIL [Concomitant]
     Indication: HYPERTENSION

REACTIONS (4)
  - Cystoid macular oedema [Recovering/Resolving]
  - Macular cyst [Recovering/Resolving]
  - Vision blurred [Recovering/Resolving]
  - Visual acuity reduced [Recovering/Resolving]
